FAERS Safety Report 8623259-3 (Version None)
Quarter: 2012Q3

REPORT INFORMATION
  Report Type: 
  Country: None (occurrence: None)
  Receive Date: 20120827
  Receipt Date: 20120816
  Transmission Date: 20120928
  Serious: Yes (Hospitalization, Disabling)
  Sender: FDA-Public Use
  Company Number: US-BAYER-2012-026591

PATIENT
  Age: 47 Year
  Sex: Female
  Weight: 68.027 kg

DRUGS (7)
  1. AMOXICILLIN [Concomitant]
     Dosage: 500 MG, UNK
     Dates: start: 20111231
  2. ZANTAC [Concomitant]
     Indication: DYSPEPSIA
     Dosage: 150 MG, PRN
     Dates: start: 20020101
  3. YAZ [Suspect]
     Indication: MENSTRUATION IRREGULAR
  4. AMBIEN [Concomitant]
     Indication: SLEEP DISORDER THERAPY
     Dosage: 10 MG, PRN
     Dates: start: 20050601
  5. ANTIBIOTICS [Concomitant]
  6. YAZ [Suspect]
     Indication: CONTRACEPTION
     Dosage: UNK
     Dates: start: 20100101, end: 20110101
  7. YAZ [Suspect]
     Indication: ACNE

REACTIONS (7)
  - PAIN [None]
  - EMOTIONAL DISTRESS [None]
  - INJURY [None]
  - HEMIPARESIS [None]
  - CEREBROVASCULAR ACCIDENT [None]
  - HEMIPLEGIA [None]
  - MENTAL DISORDER [None]
